FAERS Safety Report 14233251 (Version 1)
Quarter: 2017Q4

REPORT INFORMATION
  Report Type: Spontaneous
  Country: US (occurrence: US)
  Receive Date: 20171129
  Receipt Date: 20171129
  Transmission Date: 20180321
  Serious: Yes (Disabling, Other)
  Sender: FDA-Public Use
  Company Number: US-REGENERON PHARMACEUTICALS, INC.-2017-27468

PATIENT

DRUGS (2)
  1. EYLEA [Suspect]
     Active Substance: AFLIBERCEPT
     Indication: RETINAL VEIN OCCLUSION
     Dosage: MONTHLY, OD
     Route: 031
     Dates: start: 201710
  2. EYLEA [Suspect]
     Active Substance: AFLIBERCEPT
     Dosage: LAST PRIOR TO EVENT, OD
     Route: 031
     Dates: start: 20171114, end: 20171114

REACTIONS (4)
  - Non-infectious endophthalmitis [Unknown]
  - Blindness transient [Recovered/Resolved]
  - Anterior chamber disorder [Unknown]
  - Vitritis [Unknown]

NARRATIVE: CASE EVENT DATE: 20171117
